FAERS Safety Report 7972880-4 (Version None)
Quarter: 2011Q4

REPORT INFORMATION
  Report Type: 
  Country: None (occurrence: None)
  Receive Date: 20111213
  Receipt Date: 20111205
  Transmission Date: 20120403
  Serious: Yes (Death)
  Sender: FDA-Public Use
  Company Number: JP-ROCHE-1020165

PATIENT
  Age: 69 Year
  Sex: Female

DRUGS (2)
  1. HERCEPTIN [Suspect]
     Route: 041
     Dates: start: 20101207, end: 20110419
  2. HERCEPTIN [Suspect]
     Indication: BREAST CANCER METASTATIC
     Route: 041
     Dates: start: 20101130, end: 20101130

REACTIONS (2)
  - EJECTION FRACTION DECREASED [None]
  - DISEASE PROGRESSION [None]
